FAERS Safety Report 9248005 (Version 1)
Quarter: 2013Q2

REPORT INFORMATION
  Report Type: Spontaneous
  Country: US (occurrence: US)
  Receive Date: 20130423
  Receipt Date: 20130423
  Transmission Date: 20140414
  Serious: No
  Sender: FDA-Public Use
  Company Number: US-PFIZER INC-2013125325

PATIENT
  Age: 31 Year
  Sex: Male
  Weight: 61.22 kg

DRUGS (2)
  1. SUTENT [Suspect]
     Indication: HAEMANGIOPERICYTOMA
     Dosage: 37.5 MG, 1X/DAY
     Dates: start: 20130221
  2. LISINOPRIL [Concomitant]
     Indication: HYPERTENSION
     Dosage: UNK

REACTIONS (2)
  - Stomatitis [Not Recovered/Not Resolved]
  - Off label use [Not Recovered/Not Resolved]
